APPROVED DRUG PRODUCT: PENCICLOVIR
Active Ingredient: PENCICLOVIR
Strength: 1%
Dosage Form/Route: CREAM;TOPICAL
Application: A212368 | Product #001 | TE Code: AB
Applicant: PADAGIS ISRAEL PHARMACEUTICALS LTD
Approved: Sep 27, 2024 | RLD: No | RS: No | Type: RX